FAERS Safety Report 16821517 (Version 2)
Quarter: 2019Q3

REPORT INFORMATION
  Report Type: Spontaneous
  Country: HU (occurrence: HU)
  Receive Date: 20190918
  Receipt Date: 20190925
  Transmission Date: 20191005
  Serious: Yes (Other)
  Sender: FDA-Public Use
  Company Number: HU-PFIZER INC-2019403333

PATIENT
  Age: 45 Year
  Sex: Female

DRUGS (16)
  1. FENOSWISS [Concomitant]
     Active Substance: FENOFIBRATE
     Dosage: 267 MILLIGRAM, QD
     Route: 065
  2. MEFORAL [METFORMIN] [Concomitant]
     Dosage: 1000 MILLIGRAM, BID
     Route: 065
     Dates: end: 20190814
  3. TENOX [TEMAZEPAM] [Concomitant]
     Dosage: 5 MILLIGRAM
     Route: 065
  4. BETAHISTINE RATIOPHARM [Concomitant]
     Dosage: 16 MILLIGRAM
     Route: 065
  5. IMOVANE [Concomitant]
     Active Substance: ZOPICLONE
     Dosage: 7.5 MILLIGRAM, QD
     Route: 065
  6. PANTOPRAZOLE [Suspect]
     Active Substance: PANTOPRAZOLE
     Dosage: 20 MILLIGRAM, BID
     Route: 065
  7. ROSUVASTATIN. [Suspect]
     Active Substance: ROSUVASTATIN
     Dosage: 10 MILLIGRAM
     Route: 065
  8. XANAX [Concomitant]
     Active Substance: ALPRAZOLAM
     Dosage: 0.25 MILLIGRAM, BID
     Route: 065
  9. KVENTIAX [Concomitant]
     Active Substance: QUETIAPINE FUMARATE
     Dosage: 300 MILLIGRAM, BID
     Route: 065
  10. BISOPROLOL RATIOPHARM [Concomitant]
     Active Substance: BISOPROLOL
     Dosage: 10 MILLIGRAM
     Route: 065
  11. EUCREAS [Suspect]
     Active Substance: METFORMIN HYDROCHLORIDE\VILDAGLIPTIN
     Indication: TYPE 2 DIABETES MELLITUS
     Dosage: 50/1000 MILLIGRAM
     Route: 065
     Dates: start: 20190814, end: 201908
  12. DULSEVIA [Concomitant]
     Dosage: 90 MILLIGRAM
     Route: 065
  13. MEFORAL [METFORMIN] [Concomitant]
     Dosage: 1000 MILLIGRAM
     Route: 065
     Dates: end: 20190814
  14. XANAX [Concomitant]
     Active Substance: ALPRAZOLAM
     Indication: MENTAL DISORDER
     Dosage: 0.1 MILLIGRAM, QD
     Route: 065
  15. DIVASCAN [Concomitant]
     Dosage: 2.5 MILLIGRAM, QD
     Route: 065
  16. STILNOX [Concomitant]
     Active Substance: ZOLPIDEM TARTRATE
     Dosage: 10 MILLIGRAM
     Route: 065

REACTIONS (13)
  - Hypoaesthesia [Recovered/Resolved]
  - Vision blurred [Recovered/Resolved]
  - Dyspnoea [Recovered/Resolved]
  - Nausea [Recovered/Resolved]
  - Memory impairment [Recovered/Resolved]
  - Peripheral swelling [Recovered/Resolved]
  - Diabetic eye disease [Unknown]
  - Pallor [Recovered/Resolved]
  - Type 2 diabetes mellitus [Unknown]
  - Dizziness [Recovered/Resolved]
  - Cardiac disorder [Not Recovered/Not Resolved]
  - Dysgeusia [Unknown]
  - Vomiting [Recovered/Resolved]

NARRATIVE: CASE EVENT DATE: 2018
